FAERS Safety Report 8840846 (Version 1)
Quarter: 2012Q4

REPORT INFORMATION
  Report Type: 
  Country: US (occurrence: US)
  Receive Date: 20121015
  Receipt Date: 20121015
  Transmission Date: 20130627
  Serious: Yes (Hospitalization, Other)
  Sender: FDA-Public Use
  Company Number: PHHO2009US11776

PATIENT
  Age: 65 Year
  Sex: Female
  Weight: 52.15 kg

DRUGS (8)
  1. AFINITOR [Suspect]
     Indication: BREAST CANCER METASTATIC
     Dosage: 10 mg, QD
     Route: 048
     Dates: start: 20090909, end: 20090922
  2. AFINITOR [Suspect]
     Dosage: 5 mg, QD
     Route: 048
     Dates: start: 20091104, end: 20091111
  3. BEVACIZUMAB [Suspect]
     Indication: BREAST CANCER METASTATIC
     Dosage: 540 mg, QD
     Route: 048
     Dates: start: 20090909, end: 20091104
  4. PACLITAXEL [Suspect]
     Indication: BREAST CANCER METASTATIC
     Dosage: 140 mg, UNK
     Route: 042
     Dates: start: 20090909, end: 20091111
  5. SYNTHROID [Concomitant]
  6. PRILOSEC [Concomitant]
  7. LEXAPRO [Concomitant]
  8. OMEPRAZOLE [Concomitant]

REACTIONS (5)
  - Febrile neutropenia [Recovered/Resolved]
  - Urinary tract infection [Unknown]
  - Rash [Unknown]
  - Gastrointestinal sounds abnormal [Unknown]
  - Nodule [Unknown]
